FAERS Safety Report 21901961 (Version 2)
Quarter: 2023Q1

REPORT INFORMATION
  Report Type: Spontaneous
  Country: US (occurrence: US)
  Receive Date: 20230124
  Receipt Date: 20230201
  Transmission Date: 20230417
  Serious: No
  Sender: FDA-Public Use
  Company Number: US-AMGEN-USASP2022228231

PATIENT
  Age: 64 Year
  Sex: Female

DRUGS (3)
  1. OTEZLA [Suspect]
     Active Substance: APREMILAST
     Indication: Psoriatic arthropathy
     Dosage: 30 MILLIGRAM, BID
     Route: 048
     Dates: start: 20220401
  2. OTEZLA [Suspect]
     Active Substance: APREMILAST
     Indication: Psoriasis
  3. MELOXICAM [Concomitant]
     Active Substance: MELOXICAM
     Dosage: 15 MILLIGRAM

REACTIONS (4)
  - Headache [Recovered/Resolved]
  - Abdominal discomfort [Recovered/Resolved]
  - Diarrhoea [Recovered/Resolved]
  - Product dose omission issue [Recovered/Resolved]

NARRATIVE: CASE EVENT DATE: 20220101
